FAERS Safety Report 6707990-2 (Version None)
Quarter: 2010Q2

REPORT INFORMATION
  Report Type: 
  Country: None (occurrence: None)
  Receive Date: 20100503
  Receipt Date: 20080919
  Transmission Date: 20101027
  Serious: Yes (Other)
  Sender: FDA-Public Use
  Company Number: BR-BAYER-200820017LA

PATIENT
  Age: 31 Year
  Sex: Female

DRUGS (1)
  1. BETAFERON [Suspect]
     Indication: MULTIPLE SCLEROSIS
     Route: 058
     Dates: end: 20070101

REACTIONS (8)
  - BALANCE DISORDER [None]
  - LABYRINTHITIS [None]
  - MALAISE [None]
  - PAIN [None]
  - PYREXIA [None]
  - TACHYCARDIA [None]
  - URINARY INCONTINENCE [None]
  - VOMITING [None]
